FAERS Safety Report 7833397-0 (Version None)
Quarter: 2011Q4

REPORT INFORMATION
  Report Type: 
  Country: None (occurrence: None)
  Receive Date: 20111024
  Receipt Date: 20111011
  Transmission Date: 20120403
  Serious: Yes (Other)
  Sender: FDA-Public Use
  Company Number: US-ENDO PHARMACEUTICALS INC.-OPIR20110067

PATIENT
  Age: 25 Year
  Sex: Male

DRUGS (1)
  1. OPANA [Suspect]
     Indication: DRUG DIVERSION
     Dosage: N/A

REACTIONS (2)
  - DRUG DIVERSION [None]
  - DRUG SCREEN NEGATIVE [None]
